FAERS Safety Report 8337203-X (Version None)
Quarter: 2012Q2

REPORT INFORMATION
  Report Type: 
  Country: None (occurrence: None)
  Receive Date: 20120504
  Receipt Date: 20120501
  Transmission Date: 20120825
  Serious: Yes (Other)
  Sender: FDA-Public Use
  Company Number: US-PFIZER INC-2012043731

PATIENT
  Sex: Male
  Weight: 89.796 kg

DRUGS (8)
  1. VIAGRA [Concomitant]
     Dosage: UNK, AS NEEDED
  2. CHANTIX [Suspect]
     Dosage: UNK
     Dates: start: 20120101, end: 20120101
  3. OXYCODONE [Concomitant]
     Dosage: UNK, 4X/DAY
  4. LACTULOSE [Concomitant]
     Indication: CONSTIPATION
     Dosage: UNK
     Route: 048
  5. VALIUM [Concomitant]
     Indication: DEPRESSION
     Dosage: UNK, DAILY (AT NIGHT)
  6. CHANTIX [Suspect]
     Indication: SMOKING CESSATION THERAPY
     Dosage: UNK
  7. CELEBREX [Concomitant]
     Indication: ARTHRITIS
     Dosage: 200 MG, 1X/DAY
  8. CHANTIX [Suspect]
     Dosage: UNK
     Dates: start: 20120101, end: 20120101

REACTIONS (6)
  - SINUS DISORDER [None]
  - DYSPNOEA [None]
  - SINUSITIS [None]
  - MUCOUS MEMBRANE DISORDER [None]
  - COUGH [None]
  - DRY MOUTH [None]
